FAERS Safety Report 14309708 (Version 2)
Quarter: 2021Q2

REPORT INFORMATION
  Report Type: Report from Study
  Country: KR (occurrence: KR)
  Receive Date: 20171220
  Receipt Date: 20210520
  Transmission Date: 20210716
  Serious: Yes (Death, Hospitalization)
  Sender: FDA-Public Use
  Company Number: KR-DSJP-DSJ-2017-158021

PATIENT
  Age: 74 Year
  Sex: Male
  Weight: 63 kg

DRUGS (10)
  1. EDOXABAN [Suspect]
     Active Substance: EDOXABAN TOSYLATE
     Indication: PRODUCT USED FOR UNKNOWN INDICATION
     Dosage: 60MG, DAY
     Route: 048
     Dates: start: 20161215
  2. ACERTIL                            /00790702/ [Concomitant]
     Active Substance: PERINDOPRIL ERBUMINE
     Indication: COLON CANCER
     Dosage: 2MG, DAY
     Route: 048
     Dates: start: 20170222
  3. CONCOR [Concomitant]
     Active Substance: BISOPROLOL FUMARATE
     Indication: ATRIAL FIBRILLATION
     Dosage: 2.5MG, DAY
     Route: 048
     Dates: start: 20161215
  4. RYTMONORM [Concomitant]
     Active Substance: PROPAFENONE
     Indication: ATRIAL FIBRILLATION
  5. FEROBA YOU [Concomitant]
     Indication: COLON CANCER
     Dosage: 80MG, DAY
     Route: 048
     Dates: start: 20170222
  6. RYTMONORM [Concomitant]
     Active Substance: PROPAFENONE
     Indication: ATRIAL FLUTTER
     Dosage: 225 MG, DAY
     Route: 048
     Dates: start: 20161223
  7. CORDARONE [Concomitant]
     Active Substance: AMIODARONE HYDROCHLORIDE
     Indication: COLON CANCER
     Dosage: 600 MG / 8 H
     Route: 048
     Dates: start: 20170217
  8. TARGIN [Concomitant]
     Active Substance: NALOXONE HYDROCHLORIDE\OXYCODONE HYDROCHLORIDE
     Indication: COLON CANCER
     Dosage: 2 TAB / 12H
     Route: 048
     Dates: start: 20170224
  9. ULCERLMIN [Concomitant]
     Active Substance: SUCRALFATE
     Indication: COLON CANCER
     Dosage: 45 ML / 8 H
     Route: 042
     Dates: start: 20170216, end: 20170221
  10. LANSTON [Concomitant]
     Active Substance: LANSOPRAZOLE
     Indication: COLON CANCER
     Dosage: 30MG, DAY
     Route: 048
     Dates: start: 20170217

REACTIONS (4)
  - Malignant neoplasm progression [Fatal]
  - Colon cancer [Fatal]
  - Dizziness [Not Recovered/Not Resolved]
  - Haemorrhage [Not Recovered/Not Resolved]

NARRATIVE: CASE EVENT DATE: 201702
